FAERS Safety Report 4307715-4 (Version None)
Quarter: 2004Q1

REPORT INFORMATION
  Report Type: 
  Country: None (occurrence: None)
  Receive Date: 20040225
  Receipt Date: 20030515
  Transmission Date: 20041129
  Serious: Yes (Hospitalization, Disabling)
  Sender: FDA-Public Use
  Company Number: WAES 0305USA01650

PATIENT
  Age: 58 Year
  Sex: Male
  Weight: 100.6985 kg

DRUGS (6)
  1. ZOCOR [Suspect]
     Indication: HYPERLIPIDAEMIA
     Dosage: 20 MG/DAILY/PO
     Route: 048
     Dates: start: 20021010, end: 20021125
  2. ACCUPRIL [Concomitant]
  3. AVANDIA [Concomitant]
  4. CALAN [Concomitant]
  5. ZYLOPRIM [Concomitant]
  6. INDOMETHACIN [Concomitant]

REACTIONS (3)
  - ARTHRALGIA [None]
  - ASTHENIA [None]
  - MYALGIA [None]
